FAERS Safety Report 9512005 (Version 1)
Quarter: 2013Q1

REPORT INFORMATION
  Report Type: Spontaneous
  Country: US (occurrence: None)
  Receive Date: 20130305
  Receipt Date: 20130305
  Transmission Date: 20140127
  Serious: Yes (Other)
  Sender: FDA-Public Use
  Company Number: 163-21880-12111171

PATIENT
  Age: 69 Year
  Sex: Female

DRUGS (6)
  1. REVLIMID (LENLIDOMIDE) (10 MILLIGRAM, CAPSULES) [Suspect]
     Indication: MYELODYSPLASTIC SYNDROME
     Dosage: 10 MG, 1IN 1 D, PO
     Route: 048
     Dates: start: 20121022, end: 20121106
  2. LISINOPRIL (LISINOPRIL) (UNKNOWN) [Concomitant]
  3. METOPROLOL (METOPROLOL) (UNKNOWN) [Concomitant]
  4. PRAVASTATIN (PRAVASTATIN) (UNKNOWN) [Concomitant]
  5. LEVOTHROXINE (LEVOTHYROXINE) (UNKNOWN)? [Concomitant]
  6. MVI WITH MINERALS (MULTIVITAMINS WITH MINERALS) (UNKNOWN) [Concomitant]

REACTIONS (1)
  - Thrombocytopenia [None]
